FAERS Safety Report 9297837 (Version 1)
Quarter: 2013Q2

REPORT INFORMATION
  Report Type: Spontaneous
  Country: US (occurrence: None)
  Receive Date: 20130517
  Receipt Date: 20130517
  Transmission Date: 20140414
  Serious: Yes (Hospitalization)
  Sender: FDA-Public Use
  Company Number: None

PATIENT
  Age: 68 Year
  Sex: Female

DRUGS (3)
  1. SULFAMETHOXAZOLE/TRIMETHOPRIM [Suspect]
     Indication: URINARY TRACT INFECTION
     Dates: start: 20120124, end: 20120131
  2. PHENYTOIN [Suspect]
     Indication: CONVULSION
     Dates: start: 20120123, end: 20120131
  3. TOPAMAX [Concomitant]

REACTIONS (9)
  - Cholestasis [None]
  - Alanine aminotransferase increased [None]
  - Blood alkaline phosphatase increased [None]
  - Blood bilirubin decreased [None]
  - Rash [None]
  - Pyrexia [None]
  - Aspartate aminotransferase increased [None]
  - Pruritus [None]
  - Fatigue [None]
